FAERS Safety Report 15590182 (Version 1)
Quarter: 2018Q4

REPORT INFORMATION
  Report Type: Spontaneous
  Country: CN (occurrence: CN)
  Receive Date: 20181106
  Receipt Date: 20181106
  Transmission Date: 20190205
  Serious: Yes (Other)
  Sender: FDA-Public Use
  Company Number: CN-GLAXOSMITHKLINE-CN2018200993

PATIENT
  Age: 47 Year
  Sex: Female
  Weight: 57 kg

DRUGS (3)
  1. PAN LI SU [Concomitant]
     Indication: ABDOMINAL DISCOMFORT
     Dosage: 40 MG, QD
     Route: 048
     Dates: start: 20180814, end: 20180822
  2. ARIPIPRAZOLE. [Suspect]
     Active Substance: ARIPIPRAZOLE
     Indication: IMMUNOMODULATORY THERAPY
     Dosage: 200 MG, BID
     Route: 048
     Dates: start: 20180814, end: 20180820
  3. VOLTAREN [Suspect]
     Active Substance: DICLOFENAC SODIUM
     Indication: BACK PAIN
     Dosage: 50 MG, BID
     Route: 048
     Dates: start: 20180816, end: 20180820

REACTIONS (2)
  - Pruritus [Recovering/Resolving]
  - Rash [Recovering/Resolving]

NARRATIVE: CASE EVENT DATE: 20180820
